FAERS Safety Report 6906256-5 (Version None)
Quarter: 2010Q3

REPORT INFORMATION
  Report Type: 
  Country: None (occurrence: None)
  Receive Date: 20100803
  Receipt Date: 20100803
  Transmission Date: 20110219
  Serious: Yes (Other)
  Sender: FDA-Public Use
  Company Number: None

PATIENT
  Age: 38 Year
  Sex: Female
  Weight: 63.5036 kg

DRUGS (3)
  1. DIFLUCAN [Suspect]
     Indication: CANDIDIASIS
     Dosage: 1 TABLET TAKEN ONE TIME PO
     Route: 048
     Dates: start: 20100719, end: 20100719
  2. ALVESCO [Concomitant]
  3. ALBUTEROL [Concomitant]

REACTIONS (6)
  - HEADACHE [None]
  - MIGRAINE [None]
  - NAUSEA [None]
  - PRODUCT SUBSTITUTION ISSUE [None]
  - PYREXIA [None]
  - RASH [None]
